FAERS Safety Report 9363827 (Version 2)
Quarter: 2014Q2

REPORT INFORMATION
  Report Type: Report from Study
  Country: CA (occurrence: CA)
  Receive Date: 20130624
  Receipt Date: 20140522
  Transmission Date: 20141212
  Serious: Yes (Other)
  Sender: FDA-Public Use
  Company Number: CA-BAYER-2013-074130

PATIENT
  Age: 50 Year
  Sex: Male

DRUGS (6)
  1. BETASERON [Suspect]
     Indication: MULTIPLE SCLEROSIS
     Dosage: UNK
     Dates: start: 19980116
  2. ENABLEX [Concomitant]
  3. LORAZEPAM [Concomitant]
  4. MIRTAZAPINE [Concomitant]
  5. MORPHINE [Concomitant]
  6. BUPRENORPHINE [Concomitant]

REACTIONS (7)
  - Dysphagia [Recovered/Resolved]
  - Pyrexia [Recovered/Resolved]
  - Tremor [Recovered/Resolved]
  - Joint stiffness [Recovered/Resolved]
  - Musculoskeletal stiffness [None]
  - Injection site reaction [None]
  - Pyrexia [Recovered/Resolved]
